FAERS Safety Report 6117070-5 (Version None)
Quarter: 2009Q1

REPORT INFORMATION
  Report Type: 
  Country: None (occurrence: None)
  Receive Date: 20090314
  Receipt Date: 20090106
  Transmission Date: 20090719
  Serious: No
  Sender: FDA-Public Use
  Company Number: US-ABBOTT-09P-163-0496121-00

PATIENT
  Sex: Female

DRUGS (2)
  1. HUMIRA [Suspect]
     Indication: RHEUMATOID ARTHRITIS
     Dates: start: 20080917
  2. HUMIRA [Suspect]
     Dates: start: 20081201

REACTIONS (3)
  - AURA [None]
  - MIGRAINE [None]
  - MYODESOPSIA [None]
